FAERS Safety Report 6173821-5 (Version None)
Quarter: 2009Q2

REPORT INFORMATION
  Report Type: 
  Country: None (occurrence: None)
  Receive Date: 20090429
  Receipt Date: 20090429
  Transmission Date: 20091009
  Serious: Yes (Death)
  Sender: FDA-Public Use
  Company Number: None

PATIENT
  Sex: Male
  Weight: 106.5953 kg

DRUGS (12)
  1. PEG-INTRON [Suspect]
     Indication: HEPATITIS C
     Dosage: 800MG ONCE WEEKLY; SUBCUTANEOUS INJECTION
     Route: 058
     Dates: start: 20080910, end: 20090415
  2. REBETOL [Suspect]
     Indication: HEPATITIS C
     Dosage: 800 MG (BID); TWICE DAILY; ORAL-CAPSULES
     Route: 048
     Dates: start: 20080910, end: 20090415
  3. PROCRIT [Suspect]
     Indication: ANAEMIA
     Dates: start: 20090224, end: 20090415
  4. CIPROFLOXACIN [Concomitant]
  5. VITAMIN B-12 [Concomitant]
  6. ESOMEPRAZOLE [Concomitant]
  7. HYDROXYZINE [Concomitant]
  8. LOPERAMIDE HCL [Concomitant]
  9. MOMETASONE FUROATE [Concomitant]
  10. PROPRANOLOL [Concomitant]
  11. TRUZODONE [Concomitant]
  12. ZINC SULFATE [Concomitant]

REACTIONS (2)
  - BACK PAIN [None]
  - UNRESPONSIVE TO STIMULI [None]
